FAERS Safety Report 10101496 (Version 3)
Quarter: 2014Q2

REPORT INFORMATION
  Report Type: Spontaneous
  Country: GB (occurrence: None)
  Receive Date: 20140422
  Receipt Date: 20140520
  Transmission Date: 20141212
  Serious: Yes (Other)
  Sender: FDA-Public Use
  Company Number: AUR-APL-2014-04676

PATIENT
  Age: 49 Year
  Sex: Male
  Weight: 82 kg

DRUGS (6)
  1. METRONIDAZOLE (METRONIDAZOLE) [Suspect]
     Indication: GINGIVITIS
     Dosage: 1200 MG (400 MG,3 IN 1 D),ORAL
     Route: 048
     Dates: start: 20140402, end: 20140402
  2. METRONIDAZOLE (METRONIDAZOLE) [Suspect]
     Indication: GINGIVAL INFLAMMATION
     Dosage: 1200 MG (400 MG,3 IN 1 D),ORAL
     Route: 048
     Dates: start: 20140402, end: 20140402
  3. METRONIDAZOLE (METRONIDAZOLE) [Suspect]
     Indication: TOOTH INFECTION
     Dosage: 1200 MG (400 MG,3 IN 1 D),ORAL
     Route: 048
     Dates: start: 20140402, end: 20140402
  4. TRAMADOL (TRAMADOL) [Suspect]
     Indication: PRODUCT USED FOR UNKNOWN INDICATION
  5. PARACETAMOL (PARACETAMOL) [Suspect]
     Indication: PRODUCT USED FOR UNKNOWN INDICATION
  6. MOVICOL (POLYETHYL.GLYC. W/POTAS.CLOR/SODI. BICARB) [Concomitant]

REACTIONS (13)
  - Myalgia [None]
  - Confusional state [None]
  - Neck pain [None]
  - Musculoskeletal stiffness [None]
  - Headache [None]
  - Tinnitus [None]
  - Vision blurred [None]
  - Inhibitory drug interaction [None]
  - Pain [None]
  - Neuropathy peripheral [None]
  - Insomnia [None]
  - Myalgia [None]
  - Migraine [None]
